FAERS Safety Report 10156071 (Version 2)
Quarter: 2014Q2

REPORT INFORMATION
  Report Type: Spontaneous
  Country: GB (occurrence: GB)
  Receive Date: 20140506
  Receipt Date: 20140506
  Transmission Date: 20141212
  Serious: Yes (Hospitalization, Other)
  Sender: FDA-Public Use
  Company Number: PHFR2014GB002516

PATIENT
  Age: 28 Year
  Sex: Male

DRUGS (5)
  1. CLOZARIL [Suspect]
     Indication: SCHIZOPHRENIA
     Dosage: 200 MG, UNK
     Route: 048
     Dates: start: 20120512
  2. CLOZARIL [Suspect]
     Indication: ABNORMAL BEHAVIOUR
     Dosage: 175 MG, DAILY
     Route: 048
  3. SIMVASTATIN [Concomitant]
     Indication: BLOOD CHOLESTEROL INCREASED
     Dosage: 40 MG, UNK
     Route: 048
  4. ARIPIPRAZOLE [Concomitant]
     Dosage: 5 MG, UNK
     Route: 048
  5. MELATONIN [Concomitant]
     Indication: INSOMNIA
     Dosage: 4 MG, UNK
     Route: 048

REACTIONS (6)
  - Empyema [Recovering/Resolving]
  - Platelet count increased [Unknown]
  - White blood cell count increased [Unknown]
  - Neutrophil count increased [Unknown]
  - Blood cholesterol increased [Unknown]
  - Blood triglycerides increased [Unknown]
